FAERS Safety Report 4770925-6 (Version None)
Quarter: 2005Q3

REPORT INFORMATION
  Report Type: 
  Country: None (occurrence: None)
  Receive Date: 20050914
  Receipt Date: 20050830
  Transmission Date: 20060218
  Serious: Yes (Hospitalization)
  Sender: FDA-Public Use
  Company Number: 217682

PATIENT
  Age: 66 Year
  Sex: Female

DRUGS (7)
  1. AVASTIN [Suspect]
     Indication: COLON CANCER
     Dosage: 529.5 MG, Q3W, INTRAVENOUS
     Route: 042
     Dates: start: 20050628, end: 20050719
  2. CAPECITABINE (CAPECITABINE) [Suspect]
     Indication: COLON CANCER
     Dosage: 1650 MG, BID, ORAL
     Route: 048
     Dates: start: 20050628, end: 20050728
  3. OXALIPLATIN (OXALIPLATIN) [Suspect]
     Indication: COLON CANCER
     Dosage: 216.6 MG, Q3W, INTRAVENOUS
     Route: 042
     Dates: start: 20050628, end: 20050719
  4. OMEPRAZOLE [Concomitant]
  5. DIAMICRON (GLICLAZIDE) [Concomitant]
  6. MICARDIS [Concomitant]
  7. TRANKIMAZIN (ALPRAZOLAM) [Concomitant]

REACTIONS (3)
  - CULTURE URINE POSITIVE [None]
  - ESCHERICHIA URINARY TRACT INFECTION [None]
  - PANCREATITIS ACUTE [None]
